FAERS Safety Report 7796885-1 (Version None)
Quarter: 2011Q4

REPORT INFORMATION
  Report Type: 
  Country: None (occurrence: None)
  Receive Date: 20111005
  Receipt Date: 20111003
  Transmission Date: 20120403
  Serious: Yes (Other)
  Sender: FDA-Public Use
  Company Number: US-BRACCO-004941

PATIENT
  Sex: Male
  Weight: 91 kg

DRUGS (21)
  1. MAGNEVIST [Suspect]
     Dosage: ONCE
     Dates: start: 20021115, end: 20021115
  2. COUMADIN [Concomitant]
  3. MAGNEVIST [Suspect]
     Indication: NUCLEAR MAGNETIC RESONANCE IMAGING
     Route: 042
     Dates: start: 20021016, end: 20021016
  4. PROHANCE [Suspect]
     Indication: NUCLEAR MAGNETIC RESONANCE IMAGING
     Dates: start: 20021016, end: 20021016
  5. CLONIDINE [Concomitant]
  6. INSULIN [Concomitant]
  7. LASIX [Concomitant]
  8. CALCIUM ACETATE [Concomitant]
  9. EPOGEN [Concomitant]
  10. VITAMINS NOS [Concomitant]
  11. MINOXIDIL [Concomitant]
  12. INSULIN HUMAN [Concomitant]
  13. ACCUPRIL [Concomitant]
  14. CONTRAST MEDIA [Suspect]
     Indication: NUCLEAR MAGNETIC RESONANCE IMAGING
     Dates: start: 20021105, end: 20021105
  15. DIATX [Concomitant]
  16. FOSRENOL [Concomitant]
  17. SEVELAMER [Concomitant]
  18. MAGNEVIST [Suspect]
     Indication: ANGIOGRAM
     Dosage: ONCE
     Dates: start: 20050125, end: 20050125
  19. PROHANCE [Suspect]
     Indication: ANGIOGRAM
     Dates: start: 20021016, end: 20021016
  20. MAGNEVIST [Suspect]
     Dosage: ONCE
     Dates: start: 20040716, end: 20040716
  21. TEMAZEPAM [Concomitant]

REACTIONS (1)
  - NEPHROGENIC SYSTEMIC FIBROSIS [None]
